FAERS Safety Report 22093116 (Version 1)
Quarter: 2023Q1

REPORT INFORMATION
  Report Type: Spontaneous
  Country: GB (occurrence: GB)
  Receive Date: 20230314
  Receipt Date: 20230314
  Transmission Date: 20230417
  Serious: Yes (Other)
  Sender: FDA-Public Use
  Company Number: None

PATIENT
  Age: 96 Year
  Sex: Female
  Weight: 73 kg

DRUGS (17)
  1. BUPRENORPHINE [Suspect]
     Active Substance: BUPRENORPHINE
     Indication: Product used for unknown indication
     Dosage: 5 MICROGRAM, QH, 200 MILLILITER, 1 PATCH200 MILLILITRE(S) UNCHECKED UNITS
     Route: 065
     Dates: start: 20230111, end: 20230201
  2. ATENOLOL [Concomitant]
     Active Substance: ATENOLOL
     Dosage: 1 DOSAGE FORM
     Route: 065
     Dates: start: 20201110
  3. BISOPROLOL [Concomitant]
     Active Substance: BISOPROLOL
     Dosage: 1 DOSAGE FORM
     Route: 065
     Dates: start: 20230126
  4. CHOLECALCIFEROL [Concomitant]
     Active Substance: CHOLECALCIFEROL
     Dosage: 2 DOSAGE FORM
     Route: 065
     Dates: start: 20230123
  5. DALTEPARIN [Concomitant]
     Active Substance: DALTEPARIN
     Dosage: 2500 INTERNATIONAL UNIT
     Route: 065
     Dates: start: 20230109
  6. DENOSUMAB [Concomitant]
     Active Substance: DENOSUMAB
     Dosage: 60 MILLIGRAM
     Route: 065
     Dates: start: 20230118, end: 20230118
  7. DIHYDROCODEINE [Concomitant]
     Active Substance: DIHYDROCODEINE
     Dosage: 1 DOSAGE FORM
     Route: 065
     Dates: start: 20230108, end: 20230109
  8. DOXAZOSIN [Concomitant]
     Active Substance: DOXAZOSIN MESYLATE
     Dosage: 1 DOSAGE FORM
     Route: 065
     Dates: start: 20201110
  9. POTASSIUM BICARBONATE\SODIUM ALGINATE [Concomitant]
     Active Substance: POTASSIUM BICARBONATE\SODIUM ALGINATE
     Dosage: 2 DOSAGE FORM, AS REQUIRED, MINT
     Route: 065
     Dates: start: 20201110
  10. GENTAMICIN [Concomitant]
     Active Substance: GENTAMICIN
     Dosage: 320 MILLIGRAM
     Route: 065
     Dates: start: 20230113
  11. GLYCERIN [Concomitant]
     Active Substance: GLYCERIN
     Dosage: 1 DOSAGE FORM
     Route: 065
     Dates: start: 20230124
  12. IBUPROFEN [Concomitant]
     Active Substance: IBUPROFEN
     Dosage: 1 DOSAGE FORM, APPLICATION
     Route: 065
     Dates: start: 20230108
  13. LEVOTHYROXINE [Concomitant]
     Active Substance: LEVOTHYROXINE
     Dosage: 1 DOSAGE FORM
     Route: 065
     Dates: start: 20220729
  14. POLYETHYLENE GLYCOLS [Concomitant]
     Active Substance: POLYETHYLENE GLYCOLS
     Dosage: 1 DOSAGE FORM, SACHET
     Route: 065
     Dates: start: 20230118
  15. OXYCODONE HYDROCHLORIDE [Concomitant]
     Active Substance: OXYCODONE HYDROCHLORIDE
     Dosage: UNK, 1.25-2.5 MG
     Route: 065
     Dates: start: 20230108
  16. ACETAMINOPHEN [Concomitant]
     Active Substance: ACETAMINOPHEN
     Dosage: 2 DOSAGE FORM
     Route: 065
     Dates: start: 20230128
  17. SODIUM CHLORIDE [Concomitant]
     Active Substance: SODIUM CHLORIDE
     Dosage: UNK
     Route: 065
     Dates: start: 20230109

REACTIONS (2)
  - Dry skin [Recovered/Resolved]
  - Pruritus [Unknown]

NARRATIVE: CASE EVENT DATE: 20230201
